FAERS Safety Report 8688992 (Version 2)
Quarter: 2012Q4

REPORT INFORMATION
  Report Type: 
  Country: US (occurrence: US)
  Receive Date: 20120727
  Receipt Date: 20121101
  Transmission Date: 20130627
  Serious: No
  Sender: FDA-Public Use
  Company Number: US-ASTRAZENECA-2011SE72844

PATIENT
  Age: 47 Year
  Sex: Male

DRUGS (3)
  1. SEROQUEL [Suspect]
     Indication: BIPOLAR DISORDER
     Route: 048
  2. WELLBUTRIN [Concomitant]
  3. LITHIUM [Concomitant]

REACTIONS (7)
  - Aggression [Unknown]
  - Abnormal behaviour [Unknown]
  - Feeling abnormal [Unknown]
  - Anxiety [Unknown]
  - Adverse event [Unknown]
  - Bipolar disorder [Unknown]
  - Drug dose omission [Unknown]
